FAERS Safety Report 8184488-9 (Version None)
Quarter: 2012Q1

REPORT INFORMATION
  Report Type: 
  Country: None (occurrence: None)
  Receive Date: 20120305
  Receipt Date: 20120229
  Transmission Date: 20120608
  Serious: Yes (Hospitalization)
  Sender: FDA-Public Use
  Company Number: US-ROCHE-672790

PATIENT
  Sex: Female
  Weight: 94 kg

DRUGS (7)
  1. AVASTIN [Suspect]
     Indication: BREAST CANCER
     Dosage: TOTAL DOSE: 1425 MG, LAST DOSE PRIOR TO SAE: 25 NOVEMBER 2009, FORM: VIALS
     Route: 042
     Dates: start: 20091125, end: 20091216
  2. ZOCOR [Concomitant]
     Route: 048
  3. HERCEPTIN [Suspect]
     Indication: BREAST CANCER
     Dosage: TOTAL DOSE: 760 MG.  LAST DOSE PRIOR TO SAE: 25 NOVEMBER 2009. FORM: VIALS.
     Route: 042
     Dates: start: 20091125, end: 20091216
  4. DOCETAXEL [Suspect]
     Indication: BREAST CANCER
     Dosage: TOTAL DOSE: 158 MG.  LAST DOSE PRIOR TO SAE: 25 NOVEMBER 2009. FORM: VIALS.
     Route: 042
     Dates: start: 20091125, end: 20091216
  5. CARBOPLATIN [Suspect]
     Indication: BREAST CANCER
     Dosage: TOTAL DOSE: 656 MG, DOSE LEVEL: 6 AUC.  LAST DOSE PRIOR TO SAE: 25 NOVEMBER 2009. FORM: VIALS.
     Route: 042
     Dates: start: 20091125, end: 20091216
  6. HYDROCHLOROTHIAZIDE [Concomitant]
     Route: 048
  7. TRAMADOL HCL [Concomitant]
     Dosage: TOTAL DOSE REPORTED AS 50-100 MG EVERY HOUR.

REACTIONS (3)
  - MUCOSAL INFLAMMATION [None]
  - INAPPROPRIATE ANTIDIURETIC HORMONE SECRETION [None]
  - NEUTROPENIA [None]
